FAERS Safety Report 6869598-8 (Version None)
Quarter: 2010Q3

REPORT INFORMATION
  Report Type: 
  Country: None (occurrence: None)
  Receive Date: 20100722
  Receipt Date: 20080802
  Transmission Date: 20110219
  Serious: No
  Sender: FDA-Public Use
  Company Number: US-PFIZER INC-2008065656

PATIENT
  Sex: Female
  Weight: 56.8 kg

DRUGS (7)
  1. CHANTIX [Suspect]
     Indication: SMOKING CESSATION THERAPY
     Dates: start: 20080601
  2. ANTIHYPERTENSIVES [Concomitant]
  3. VARIOUS ALIMENTARY TRACT + METABOLISM PRODUCT [Concomitant]
  4. RANITIDINE [Concomitant]
  5. TOPAMAX [Concomitant]
     Indication: MIGRAINE
  6. KLONOPIN [Concomitant]
     Indication: ANXIETY
  7. CELEXA [Concomitant]

REACTIONS (6)
  - ABNORMAL DREAMS [None]
  - BLOOD CHOLESTEROL ABNORMAL [None]
  - CONSTIPATION [None]
  - DIARRHOEA [None]
  - NAUSEA [None]
  - SOMNOLENCE [None]
